FAERS Safety Report 9278059 (Version 1)
Quarter: 2012Q4

REPORT INFORMATION
  Report Type: Spontaneous
  Country: US (occurrence: None)
  Receive Date: 20121210
  Receipt Date: 20121210
  Transmission Date: 20130627
  Serious: Yes (Other)
  Sender: FDA-Public Use
  Company Number: USA/USA/12/0026885

PATIENT
  Age: 62 Year
  Sex: Female
  Weight: 68.04 kg

DRUGS (5)
  1. AUGMENTIN [Suspect]
     Indication: UPPER RESPIRATORY TRACT INFECTION
  2. CEPHALEXIN [Suspect]
     Indication: UPPER RESPIRATORY TRACT INFECTION
  3. BIAXIN [Suspect]
     Indication: UPPER RESPIRATORY TRACT INFECTION
  4. ROBAXIN [Suspect]
     Indication: UPPER RESPIRATORY TRACT INFECTION
     Dates: start: 2012, end: 2012
  5. LOTREL (AMLODIPINE BESYLATE W/BENAZEPRIL HYDROCHLOR) [Concomitant]

REACTIONS (5)
  - Upper respiratory tract infection [None]
  - Condition aggravated [None]
  - Cystitis haemorrhagic [None]
  - Otitis media [None]
  - Drug ineffective [None]
